FAERS Safety Report 12539222 (Version 3)
Quarter: 2017Q1

REPORT INFORMATION
  Report Type: Report from Study
  Country: CA (occurrence: CA)
  Receive Date: 20160708
  Receipt Date: 20170323
  Transmission Date: 20170428
  Serious: No
  Sender: FDA-Public Use
  Company Number: PHHY2016CA092173

PATIENT
  Sex: Female

DRUGS (2)
  1. TASIGNA [Suspect]
     Active Substance: NILOTINIB
     Indication: CHRONIC MYELOID LEUKAEMIA
     Dosage: 300 MG, BID
     Route: 048
     Dates: start: 201605
  2. ZOLOFT [Concomitant]
     Active Substance: SERTRALINE HYDROCHLORIDE
     Indication: PRODUCT USED FOR UNKNOWN INDICATION
     Dosage: 50 MG, UNK
     Route: 065

REACTIONS (13)
  - Stress [Recovered/Resolved]
  - Performance status decreased [Unknown]
  - Insomnia [Unknown]
  - Headache [Recovered/Resolved]
  - Diarrhoea [Recovered/Resolved]
  - Glossodynia [None]
  - Rash erythematous [Recovered/Resolved]
  - Asthenia [Unknown]
  - Disturbance in attention [Unknown]
  - Alopecia [Recovered/Resolved]
  - Anxiety [Unknown]
  - Cytogenetic analysis abnormal [Unknown]
  - Fatigue [Not Recovered/Not Resolved]
